FAERS Safety Report 5469954-9 (Version None)
Quarter: 2007Q3

REPORT INFORMATION
  Report Type: 
  Country: None (occurrence: None)
  Receive Date: 20070927
  Receipt Date: 20070913
  Transmission Date: 20080115
  Serious: Yes (Death, Other)
  Sender: FDA-Public Use
  Company Number: GB-BAUSCH-2007BL003329

PATIENT

DRUGS (2)
  1. PREDNISOLONE SODIUM PHOSPHATE [Suspect]
     Route: 064
     Dates: start: 20040404
  2. ARAVA [Suspect]
     Route: 064
     Dates: start: 20060406, end: 20060823

REACTIONS (1)
  - PREMATURE BABY [None]
